FAERS Safety Report 8024157-9 (Version None)
Quarter: 2012Q1

REPORT INFORMATION
  Report Type: 
  Country: None (occurrence: None)
  Receive Date: 20120105
  Receipt Date: 20111229
  Transmission Date: 20120608
  Serious: Yes (Other)
  Sender: FDA-Public Use
  Company Number: CN-SANOFI-AVENTIS-2011SA085619

PATIENT

DRUGS (3)
  1. DOCETAXEL [Suspect]
     Dosage: ON DAY 1 OF 21 DAY CYCLE
     Route: 065
  2. CAPECITABINE [Suspect]
     Dosage: ON DAY 1-14 OF 21 DAYS CYCLE
     Route: 048
  3. VINORELBINE TARTRATE [Suspect]
     Dosage: ON DAY 1 AND 8 OF 21 DAYS CYCLE
     Route: 065

REACTIONS (7)
  - TRANSAMINASES ABNORMAL [None]
  - PALMAR-PLANTAR ERYTHRODYSAESTHESIA SYNDROME [None]
  - NEUTROPENIA [None]
  - STOMATITIS [None]
  - THROMBOCYTOPENIA [None]
  - ANAEMIA [None]
  - GASTROINTESTINAL TOXICITY [None]
